FAERS Safety Report 7938572-2 (Version None)
Quarter: 2011Q4

REPORT INFORMATION
  Report Type: 
  Country: None (occurrence: None)
  Receive Date: 20111123
  Receipt Date: 20111115
  Transmission Date: 20120403
  Serious: Yes (Other)
  Sender: FDA-Public Use
  Company Number: US-BAXTER-2011BH036698

PATIENT
  Age: 13 Month
  Sex: Male

DRUGS (2)
  1. ADVATE [Suspect]
     Indication: FACTOR VIII DEFICIENCY
     Route: 042
     Dates: start: 20040903
  2. ADVATE [Suspect]
     Route: 042
     Dates: start: 20051015

REACTIONS (1)
  - HAEMORRHAGE INTRACRANIAL [None]
